FAERS Safety Report 18108150 (Version 1)
Quarter: 2020Q3

REPORT INFORMATION
  Report Type: Spontaneous
  Country: US (occurrence: US)
  Receive Date: 20200803
  Receipt Date: 20200803
  Transmission Date: 20201103
  Serious: No
  Sender: FDA-Public Use
  Company Number: US-ASSERTIO THERAPEUTICS, INC.-US-2019DEP000521

PATIENT
  Age: 64 Year
  Sex: Male

DRUGS (1)
  1. ZIPSOR [Suspect]
     Active Substance: DICLOFENAC POTASSIUM
     Indication: BRACHIAL PLEXUS INJURY
     Dosage: 25 MG, QID
     Route: 048
     Dates: start: 20190516, end: 20190528

REACTIONS (2)
  - Gastrooesophageal reflux disease [Recovered/Resolved]
  - Product use in unapproved indication [Unknown]

NARRATIVE: CASE EVENT DATE: 20190516
